FAERS Safety Report 14620640 (Version 3)
Quarter: 2018Q2

REPORT INFORMATION
  Report Type: Report from Study
  Country: IT (occurrence: IT)
  Receive Date: 20180309
  Receipt Date: 20180509
  Transmission Date: 20180711
  Serious: Yes (Death, Hospitalization)
  Sender: FDA-Public Use
  Company Number: IT-CELGENEUS-ITA-20180205365

PATIENT
  Age: 50 Year
  Sex: Male
  Weight: 81 kg

DRUGS (10)
  1. CYCLOPHOSPHAMIDE. [Suspect]
     Active Substance: CYCLOPHOSPHAMIDE
     Indication: T-CELL LYMPHOMA
     Dosage: 1500 MILLIGRAM
     Route: 041
     Dates: start: 20171205, end: 20180116
  2. PREDNISONE. [Suspect]
     Active Substance: PREDNISONE
     Dosage: 12 MILLIGRAM
     Route: 048
     Dates: start: 20171209, end: 20180120
  3. METILPREDNISOLONE [Suspect]
     Active Substance: METHYLPREDNISOLONE
     Indication: T-CELL LYMPHOMA
     Dosage: 80 MILLIGRAM
     Route: 041
     Dates: start: 20171205, end: 20180116
  4. VINCRISTINE [Suspect]
     Active Substance: VINCRISTINE
     Indication: T-CELL LYMPHOMA
     Dosage: 2 MILLIGRAM
     Route: 041
     Dates: start: 20171205, end: 20180116
  5. DOXORUBICIN [Suspect]
     Active Substance: DOXORUBICIN
     Indication: T-CELL LYMPHOMA
     Dosage: 100 MILLIGRAM
     Route: 041
     Dates: start: 20171205, end: 20180116
  6. PREDNISONE. [Suspect]
     Active Substance: PREDNISONE
     Indication: T-CELL LYMPHOMA
     Dosage: 50 MILLIGRAM
     Route: 048
     Dates: start: 20171206, end: 20180118
  7. FILGRASTIM [Concomitant]
     Active Substance: FILGRASTIM
     Indication: PROPHYLAXIS
     Route: 065
     Dates: start: 201712
  8. PREDNISONE. [Suspect]
     Active Substance: PREDNISONE
     Dosage: 25 MILLIGRAM
     Route: 048
     Dates: start: 20171207, end: 20180119
  9. BACTRIM [Concomitant]
     Active Substance: SULFAMETHOXAZOLE\TRIMETHOPRIM
     Indication: ANTIBIOTIC PROPHYLAXIS
     Route: 065
     Dates: start: 201712
  10. ROMIDEPSIN. [Suspect]
     Active Substance: ROMIDEPSIN
     Indication: T-CELL LYMPHOMA
     Dosage: 14 MILLIGRAM
     Route: 041
     Dates: start: 20171204, end: 20180123

REACTIONS (3)
  - Sepsis [Unknown]
  - Respiratory failure [Fatal]
  - Pyrexia [Recovered/Resolved]

NARRATIVE: CASE EVENT DATE: 20180214
